FAERS Safety Report 8979909 (Version 1)
Quarter: 2012Q4

REPORT INFORMATION
  Report Type: 
  Country: FR (occurrence: FR)
  Receive Date: 20121221
  Receipt Date: 20121221
  Transmission Date: 20130627
  Serious: Yes (Disabling, Other)
  Sender: FDA-Public Use
  Company Number: PHHY2012FR117834

PATIENT
  Age: 40 Year
  Sex: Female

DRUGS (3)
  1. MYFORTIC [Suspect]
     Dosage: 180 mg, BID
     Route: 048
     Dates: start: 20111031, end: 20120423
  2. PROGRAF [Suspect]
     Dosage: 1 mg, BID
     Route: 048
     Dates: start: 2009
  3. FOLFOX-4 [Concomitant]

REACTIONS (5)
  - Squamous cell carcinoma [Recovered/Resolved with Sequelae]
  - Adenocarcinoma [Not Recovered/Not Resolved]
  - Haemorrhoids [Unknown]
  - Hyperkeratosis [Unknown]
  - Oral herpes [Unknown]
